FAERS Safety Report 7722431-4 (Version None)
Quarter: 2011Q3

REPORT INFORMATION
  Report Type: 
  Country: None (occurrence: None)
  Receive Date: 20110831
  Receipt Date: 20110825
  Transmission Date: 20111222
  Serious: Yes (Hospitalization, Other)
  Sender: FDA-Public Use
  Company Number: US-PFIZER INC-2011197008

PATIENT
  Age: 70 Year
  Sex: Male
  Weight: 126 kg

DRUGS (6)
  1. DYAZIDE [Suspect]
  2. METFORMIN HCL [Suspect]
  3. SUNITINIB MALATE [Suspect]
     Indication: ADRENAL CARCINOMA
     Dosage: 37.5 MG, 1X/DAY ON DAYS 1-28
     Route: 048
     Dates: start: 20110627, end: 20110724
  4. BEVACIZUMAB [Suspect]
     Dosage: UNK
     Dates: start: 20110808
  5. SUNITINIB MALATE [Suspect]
     Dosage: 25 MG, UNK
     Dates: start: 20110808
  6. BEVACIZUMAB [Suspect]
     Indication: ADRENAL CARCINOMA
     Dosage: 5 MG/KG, OVER 90-30 MIN ON DAYS 1, 15 AND 29
     Route: 042
     Dates: start: 20110627, end: 20110711

REACTIONS (3)
  - RENAL FAILURE ACUTE [None]
  - HYPERURICAEMIA [None]
  - DEHYDRATION [None]
